FAERS Safety Report 4879033-7 (Version None)
Quarter: 2006Q1

REPORT INFORMATION
  Report Type: 
  Country: None (occurrence: None)
  Receive Date: 20060110
  Receipt Date: 20060110
  Transmission Date: 20060701
  Serious: Yes (Hospitalization)
  Sender: FDA-Public Use
  Company Number: None

PATIENT
  Sex: Female
  Weight: 78 kg

DRUGS (6)
  1. CISPLATIN [Suspect]
     Indication: SMALL CELL LUNG CANCER STAGE UNSPECIFIED
     Dosage: SEE IMAGE
     Route: 042
     Dates: start: 20051003, end: 20051107
  2. CISPLATIN [Suspect]
     Indication: SMALL CELL LUNG CANCER STAGE UNSPECIFIED
     Dosage: SEE IMAGE
     Route: 042
     Dates: start: 20051221
  3. IRINOTECAN HCL [Suspect]
     Dosage: SEE IMAGE
     Route: 042
     Dates: start: 20051003, end: 20051107
  4. CARBOPLATIN [Suspect]
     Dosage: SEE IMAGE
     Route: 042
     Dates: start: 20051130, end: 20051223
  5. ETOPOSIDE [Suspect]
     Dosage: SEE IMAGE
     Route: 042
     Dates: start: 20051130, end: 20051223
  6. RADIATION [Suspect]
     Dosage: SEE IMAGE

REACTIONS (3)
  - DYSPHAGIA [None]
  - FEBRILE NEUTROPENIA [None]
  - OESOPHAGITIS [None]
